FAERS Safety Report 8376006-7 (Version None)
Quarter: 2012Q2

REPORT INFORMATION
  Report Type: 
  Country: None (occurrence: None)
  Receive Date: 20120522
  Receipt Date: 20120514
  Transmission Date: 20120825
  Serious: Yes (Other)
  Sender: FDA-Public Use
  Company Number: PHHY2012BR038907

PATIENT
  Sex: Female

DRUGS (3)
  1. AMLODIPINE BESYLATE [Suspect]
  2. EXFORGE [Suspect]
     Indication: HYPERTENSION
     Dosage: 1 DF (320/5 MG), UNK
  3. VALSARTAN [Suspect]
     Indication: HYPERTENSION

REACTIONS (3)
  - DEPRESSED MOOD [None]
  - FRUSTRATION [None]
  - HODGKIN'S DISEASE [None]
